FAERS Safety Report 6968538-0 (Version None)
Quarter: 2010Q3

REPORT INFORMATION
  Report Type: 
  Country: None (occurrence: None)
  Receive Date: 20100907
  Receipt Date: 20100827
  Transmission Date: 20110219
  Serious: Yes (Other)
  Sender: FDA-Public Use
  Company Number: US-PFIZER INC-2010108622

PATIENT
  Sex: Female
  Weight: 65 kg

DRUGS (6)
  1. CHANTIX [Suspect]
     Indication: SMOKING CESSATION THERAPY
     Dosage: 0.5 MG, 1X/DAY
     Route: 048
     Dates: start: 20100730, end: 20100101
  2. CHANTIX [Suspect]
     Dosage: 0.5 MG, 2X/DAY
     Route: 048
     Dates: start: 20100101
  3. EFFEXOR [Concomitant]
     Dosage: UNK
  4. CLONAZEPAM [Concomitant]
     Dosage: UNK
  5. VENLAFAXINE [Concomitant]
     Dosage: UNK
  6. TOPIRAMATE [Concomitant]
     Dosage: UNK

REACTIONS (2)
  - FEELING ABNORMAL [None]
  - NERVOUSNESS [None]
